FAERS Safety Report 8781692 (Version 1)
Quarter: 2012Q4

REPORT INFORMATION
  Report Type: Report from Study
  Country: US (occurrence: US)
  Receive Date: 20120913
  Receipt Date: 20120913
  Transmission Date: 20130627
  Serious: No
  Sender: FDA-Public Use
  Company Number: US-VERTEX PHARMACEUTICAL INC.-AE-2012-007799

PATIENT
  Sex: Male

DRUGS (3)
  1. INCIVEK [Suspect]
     Indication: HEPATITIS C
     Route: 048
     Dates: start: 20120412, end: 20120514
  2. PEGASYS [Concomitant]
     Indication: HEPATITIS C
     Dates: end: 20120514
  3. RIBAVIRIN [Concomitant]
     Indication: HEPATITIS C
     Dates: end: 20120514

REACTIONS (2)
  - Irritable bowel syndrome [Unknown]
  - Nausea [Unknown]
